FAERS Safety Report 13423248 (Version 1)
Quarter: 2017Q2

REPORT INFORMATION
  Report Type: Spontaneous
  Country: US (occurrence: US)
  Receive Date: 20170410
  Receipt Date: 20170410
  Transmission Date: 20170830
  Serious: Yes (Hospitalization, Other)
  Sender: FDA-Public Use
  Company Number: US-JUBILANT CADISTA PHARMACEUTICALS-2017JUB00057

PATIENT
  Age: 54 Year
  Sex: Male
  Weight: 58.96 kg

DRUGS (7)
  1. SINGULAIR [Concomitant]
     Active Substance: MONTELUKAST SODIUM
     Dosage: 10 MG, AS NEEDED
     Route: 048
  2. ATENOLOL. [Concomitant]
     Active Substance: ATENOLOL
     Dosage: 50 UNK, 1X/DAY
     Route: 048
  3. ALPRAZOLAM. [Concomitant]
     Active Substance: ALPRAZOLAM
     Dosage: 0.5 MG, AS NEEDED
     Route: 048
  4. MULTIVITAMIN [Concomitant]
     Active Substance: VITAMINS
     Dosage: 1 TABLETS, 1X/DAY
     Route: 048
  5. SPIRONOLACTONE. [Suspect]
     Active Substance: SPIRONOLACTONE
     Indication: HYPERTENSION
     Dosage: 25 MG, 1X/DAY
     Route: 048
     Dates: start: 20161109, end: 201701
  6. ACETAMINOPHEN-HYDROCODONE [Concomitant]
     Indication: BACK PAIN
     Dosage: 1 DOSAGE UNITS, AS NEEDED
  7. OMEPRAZOLE. [Concomitant]
     Active Substance: OMEPRAZOLE
     Dosage: 20 MG, 1X/DAY
     Route: 048

REACTIONS (12)
  - Thirst [Recovering/Resolving]
  - Sexual dysfunction [Recovering/Resolving]
  - Dry mouth [Recovering/Resolving]
  - Urine flow decreased [Recovering/Resolving]
  - Asthenia [Recovering/Resolving]
  - Sinusitis [Unknown]
  - Alcoholic pancreatitis [Unknown]
  - Systemic inflammatory response syndrome [Recovered/Resolved]
  - Fatigue [Recovering/Resolving]
  - Gynaecomastia [Recovering/Resolving]
  - Pancreatic pseudocyst [Unknown]
  - Urine output decreased [Recovering/Resolving]

NARRATIVE: CASE EVENT DATE: 201612
